FAERS Safety Report 4610756-0 (Version None)
Quarter: 2005Q1

REPORT INFORMATION
  Report Type: 
  Country: None (occurrence: None)
  Receive Date: 20050316
  Receipt Date: 20050128
  Transmission Date: 20050727
  Serious: Yes (Death, Hospitalization)
  Sender: FDA-Public Use
  Company Number: US-AMGEN-US110108

PATIENT
  Sex: Female
  Weight: 85.4 kg

DRUGS (9)
  1. ENBREL [Suspect]
     Indication: RHEUMATOID ARTHRITIS
     Route: 058
     Dates: start: 20040330, end: 20050127
  2. METHOTREXATE [Concomitant]
     Route: 048
     Dates: start: 19941101
  3. PLAQUENIL [Concomitant]
     Dates: start: 19901101
  4. CELEBREX [Concomitant]
  5. CALCIUM WITH VITAMIN D [Concomitant]
  6. FOLIC ACID [Concomitant]
  7. CLARITIN [Concomitant]
  8. DIOVAN [Concomitant]
  9. HYDROCHLOROTHIAZIDE [Concomitant]

REACTIONS (10)
  - ABNORMAL BEHAVIOUR [None]
  - CEREBROVASCULAR ACCIDENT [None]
  - COORDINATION ABNORMAL [None]
  - COXSACKIE VIRAL INFECTION [None]
  - CREUTZFELDT-JAKOB DISEASE [None]
  - ELECTROENCEPHALOGRAM ABNORMAL [None]
  - FAECAL INCONTINENCE [None]
  - RESPIRATORY FAILURE [None]
  - URINARY INCONTINENCE [None]
  - WEIGHT INCREASED [None]
